FAERS Safety Report 17554101 (Version 1)
Quarter: 2020Q1

REPORT INFORMATION
  Report Type: Report from Study
  Country: None (occurrence: US)
  Receive Date: 20200317
  Receipt Date: 20200317
  Transmission Date: 20200409
  Serious: Yes (Other)
  Sender: FDA-Public Use
  Company Number: US-ABBVIE-20K-163-3321245-00

PATIENT
  Sex: Male

DRUGS (3)
  1. CALQUENCE [Concomitant]
     Active Substance: ACALABRUTINIB
     Indication: MANTLE CELL LYMPHOMA
     Route: 048
  2. ALLOPURINOL. [Concomitant]
     Active Substance: ALLOPURINOL
     Indication: PRODUCT USED FOR UNKNOWN INDICATION
  3. VENCLEXTA [Suspect]
     Active Substance: VENETOCLAX
     Indication: MANTLE CELL LYMPHOMA
     Route: 048
     Dates: start: 20200227, end: 20200310

REACTIONS (8)
  - Pulmonary oedema [Unknown]
  - White blood cell count decreased [Unknown]
  - Packed red blood cell transfusion [Unknown]
  - Dyspnoea [Unknown]
  - Platelet count decreased [Unknown]
  - Tongue discolouration [Unknown]
  - Acne [Unknown]
  - Heart rate increased [Unknown]

NARRATIVE: CASE EVENT DATE: 2020
